FAERS Safety Report 24054116 (Version 1)
Quarter: 2024Q3

REPORT INFORMATION
  Report Type: Spontaneous
  Country: US (occurrence: US)
  Receive Date: 20240705
  Receipt Date: 20240705
  Transmission Date: 20241016
  Serious: Yes (Death, Life-Threatening, Hospitalization, Other)
  Sender: Unknown Manufacturer
  Company Number: US-862174955-ML2024-03707

PATIENT
  Age: 49 Year
  Sex: Male

DRUGS (3)
  1. FENOFIBRATE [Suspect]
     Active Substance: FENOFIBRATE
     Indication: Product used for unknown indication
  2. UNSPECIFIED INGREDIENT [Suspect]
     Active Substance: UNSPECIFIED INGREDIENT
     Indication: Product used for unknown indication
  3. TACROLIMUS [Concomitant]
     Active Substance: TACROLIMUS

REACTIONS (8)
  - Drug interaction [Fatal]
  - Gastrointestinal haemorrhage [Fatal]
  - Haemodynamic instability [Fatal]
  - Acidosis [Fatal]
  - Rhabdomyolysis [Fatal]
  - Hepatic failure [Fatal]
  - Anaemia [Fatal]
  - Acute kidney injury [Fatal]
